FAERS Safety Report 8850345 (Version 3)
Quarter: 2013Q1

REPORT INFORMATION
  Report Type: Report from Study
  Country: US (occurrence: US)
  Receive Date: 20121019
  Receipt Date: 20130125
  Transmission Date: 20140127
  Serious: No
  Sender: FDA-Public Use
  Company Number: US-VERTEX PHARMACEUTICAL INC.-2012-022871

PATIENT
  Age: 63 Year
  Sex: Female
  Weight: 68 kg

DRUGS (7)
  1. VX-950 (TELAPREVIR) [Suspect]
     Indication: HEPATITIS C
     Dosage: 750 MG, TID
     Route: 048
     Dates: start: 20120914, end: 20121207
  2. RIBAVIRIN [Suspect]
     Indication: HEPATITIS C
     Dosage: 3 DF, BID
     Route: 048
     Dates: start: 20120914, end: 20121015
  3. RIBAVIRIN [Suspect]
     Dosage: 2 DF, BID
     Route: 048
     Dates: start: 20121015
  4. RIBAVIRIN [Suspect]
     Dosage: 1 DF, BID
     Route: 048
     Dates: start: 201210, end: 201210
  5. PEGASYS [Suspect]
     Indication: HEPATITIS C
     Dosage: 180 ?G, QW
     Route: 058
     Dates: start: 20120914
  6. KLONOPIN [Concomitant]
     Indication: ANXIETY
     Dosage: 1 MG, QD
  7. MIRTAZAPINE [Concomitant]
     Indication: DEPRESSION
     Dosage: 45 MG, QD
     Route: 048

REACTIONS (11)
  - Dizziness [Not Recovered/Not Resolved]
  - Influenza like illness [Not Recovered/Not Resolved]
  - Pyrexia [Not Recovered/Not Resolved]
  - Alopecia [Not Recovered/Not Resolved]
  - Feeling cold [Not Recovered/Not Resolved]
  - Decreased appetite [Not Recovered/Not Resolved]
  - Thirst [Unknown]
  - Fatigue [Not Recovered/Not Resolved]
  - Anaemia [Recovered/Resolved]
  - Platelet count decreased [Recovered/Resolved]
  - Nausea [Not Recovered/Not Resolved]
